FAERS Safety Report 9784009 (Version 1)
Quarter: 2013Q4

REPORT INFORMATION
  Report Type: Spontaneous
  Country: FR (occurrence: FR)
  Receive Date: 20131226
  Receipt Date: 20131226
  Transmission Date: 20140711
  Serious: Yes (Hospitalization)
  Sender: FDA-Public Use
  Company Number: FR-PFIZER INC-2013363218

PATIENT
  Age: 50 Year
  Sex: Female

DRUGS (2)
  1. AROMASINE [Suspect]
     Indication: BREAST CANCER
     Dosage: UNK
     Route: 048
  2. AFINITOR [Suspect]
     Indication: BREAST CANCER
     Dosage: UNK
     Route: 048

REACTIONS (1)
  - Epistaxis [Recovered/Resolved]
